FAERS Safety Report 4490939-3 (Version None)
Quarter: 2004Q4

REPORT INFORMATION
  Report Type: 
  Country: None (occurrence: None)
  Receive Date: 20041027
  Receipt Date: 20041011
  Transmission Date: 20050328
  Serious: Yes (Death)
  Sender: FDA-Public Use
  Company Number: L04-SWE-06630-30

PATIENT
  Age: 61 Year
  Sex: Male

DRUGS (3)
  1. CITALOPRAM [Suspect]
  2. CARBAMAZEPINE [Concomitant]
  3. CARBONMONOXIDE (CARBON MONOXIDE) [Concomitant]

REACTIONS (3)
  - COMPLETED SUICIDE [None]
  - INJURY ASPHYXIATION [None]
  - LABORATORY TEST ABNORMAL [None]
